FAERS Safety Report 6941564-3 (Version None)
Quarter: 2010Q3

REPORT INFORMATION
  Report Type: 
  Country: None (occurrence: None)
  Receive Date: 20100825
  Receipt Date: 20100812
  Transmission Date: 20110219
  Serious: Yes (Hospitalization, Disabling)
  Sender: FDA-Public Use
  Company Number: GB-WATSON-2010-11291

PATIENT
  Age: 41 Year
  Sex: Male

DRUGS (3)
  1. FUROSEMIDE (WATSON LABORATORIES) [Suspect]
     Indication: ATRIAL FIBRILLATION
     Dosage: 80 MG, BID
  2. RAMIPRIL (WATSON LABORATORIES) [Suspect]
     Indication: ATRIAL FIBRILLATION
     Dosage: 10 MG, DAILY
  3. INDOMETHACIN SODIUM [Suspect]
     Indication: GOUT
     Dosage: 25 MG, TID

REACTIONS (3)
  - DEAFNESS NEUROSENSORY [None]
  - DRUG TOXICITY [None]
  - RENAL FAILURE ACUTE [None]
